FAERS Safety Report 4635750-5 (Version None)
Quarter: 2005Q2

REPORT INFORMATION
  Report Type: 
  Country: None (occurrence: None)
  Receive Date: 20050413
  Receipt Date: 20050331
  Transmission Date: 20051028
  Serious: Yes (Hospitalization)
  Sender: FDA-Public Use
  Company Number: 2005018729

PATIENT
  Age: 62 Year
  Sex: Male
  Weight: 80 kg

DRUGS (4)
  1. IRINOTECAN HCL [Suspect]
     Indication: COLORECTAL CANCER METASTATIC
     Dosage: 160 MG (WK), INTRAVENOUS
     Route: 042
     Dates: start: 20041222, end: 20050119
  2. FLUOROURACIL [Concomitant]
  3. LEUCOVORIN CALCIUM [Concomitant]
  4. ATROPINE [Concomitant]

REACTIONS (7)
  - APATHY [None]
  - DIZZINESS [None]
  - FATIGUE [None]
  - PRURITUS [None]
  - RASH PUSTULAR [None]
  - SOMNOLENCE [None]
  - VISUAL DISTURBANCE [None]
